FAERS Safety Report 15061727 (Version 5)
Quarter: 2018Q3

REPORT INFORMATION
  Report Type: Report from Study
  Country: BR (occurrence: BR)
  Receive Date: 20180625
  Receipt Date: 20180802
  Transmission Date: 20181010
  Serious: Yes (Other)
  Sender: FDA-Public Use
  Company Number: PHHY2018BR024629

PATIENT
  Age: 86 Year
  Sex: Female
  Weight: 42 kg

DRUGS (6)
  1. TEBONIN [Concomitant]
     Active Substance: GINKGO
     Indication: LABYRINTHITIS
     Dosage: 2 DF, QD
     Route: 048
  2. QUETIAPINE. [Suspect]
     Active Substance: QUETIAPINE
     Indication: ABNORMAL BEHAVIOUR
     Dosage: 25 MG, QD (AT NIGHT)
     Route: 048
  3. CENTRUM [Concomitant]
     Active Substance: VITAMINS
     Indication: VITAMIN SUPPLEMENTATION
     Dosage: 1 DF, QD
     Route: 048
  4. EXELON [Suspect]
     Active Substance: RIVASTIGMINE TARTRATE
     Indication: SENILE DEMENTIA
     Dosage: 2 DF, QD
     Route: 048
     Dates: start: 201803, end: 20180422
  5. EXELON [Suspect]
     Active Substance: RIVASTIGMINE TARTRATE
     Indication: DEMENTIA ALZHEIMER^S TYPE
  6. EXELON PATCH [Suspect]
     Active Substance: RIVASTIGMINE
     Indication: DEMENTIA ALZHEIMER^S TYPE
     Dosage: 4.6 MG, (PATCH 5CM2), QD (AT NIGHT)
     Route: 062
     Dates: start: 20180422

REACTIONS (10)
  - Application site plaque [Not Recovered/Not Resolved]
  - Dizziness [Recovering/Resolving]
  - Visual impairment [Recovering/Resolving]
  - Diarrhoea [Recovering/Resolving]
  - Lung neoplasm malignant [Not Recovered/Not Resolved]
  - Dementia Alzheimer^s type [Not Recovered/Not Resolved]
  - Memory impairment [Not Recovered/Not Resolved]
  - Condition aggravated [Not Recovered/Not Resolved]
  - Malaise [Recovering/Resolving]
  - Product adhesion issue [Not Recovered/Not Resolved]

NARRATIVE: CASE EVENT DATE: 201803
